FAERS Safety Report 8167469-0 (Version None)
Quarter: 2012Q1

REPORT INFORMATION
  Report Type: 
  Country: None (occurrence: None)
  Receive Date: 20120227
  Receipt Date: 20120221
  Transmission Date: 20120608
  Serious: Yes (Death, Other)
  Sender: FDA-Public Use
  Company Number: IE-PFIZER INC-2012045501

PATIENT
  Age: 90 Year
  Sex: Male

DRUGS (1)
  1. ZYVOX [Suspect]
     Indication: CELLULITIS
     Dosage: UNK
     Route: 042

REACTIONS (3)
  - DRUG INEFFECTIVE [None]
  - DEATH [None]
  - DEEP VEIN THROMBOSIS [None]
